FAERS Safety Report 20494023 (Version 3)
Quarter: 2022Q1

REPORT INFORMATION
  Report Type: Other
  Country: US (occurrence: None)
  Receive Date: 20220221
  Receipt Date: 20220304
  Transmission Date: 20220423
  Serious: Yes (Death, Other)
  Sender: FDA-Public Use
  Company Number: US-ROCHE-3030350

PATIENT
  Age: 88 Year
  Sex: Male

DRUGS (22)
  1. ESBRIET [Suspect]
     Active Substance: PIRFENIDONE
     Indication: Interstitial lung disease
     Dosage: TAKE 3 TABLET(S) BY MOUTH 3 TIMES A DAY
     Route: 048
  2. ASPIRIN [Concomitant]
     Active Substance: ASPIRIN
     Route: 048
  3. CILOTAZOLE [Concomitant]
  4. FAMOTIDINE [Concomitant]
     Active Substance: FAMOTIDINE
     Route: 050
  5. FINASTERIDA [Concomitant]
  6. LATANOPROST [Concomitant]
     Active Substance: LATANOPROST
  7. METOPROLOL TARTRATE [Concomitant]
     Active Substance: METOPROLOL TARTRATE
     Route: 048
  8. MIDODRINE [Concomitant]
     Active Substance: MIDODRINE
  9. PRAMIPEXOLE [Concomitant]
     Active Substance: PRAMIPEXOLE
  10. PRAVASTATIN [Concomitant]
     Active Substance: PRAVASTATIN
     Route: 048
  11. PREDNISONE [Concomitant]
     Active Substance: PREDNISONE
     Route: 048
  12. TAMSULOSIN [Concomitant]
     Active Substance: TAMSULOSIN
  13. WARFARIN [Concomitant]
     Active Substance: WARFARIN
     Route: 048
  14. CILOSTAZOL [Concomitant]
     Active Substance: CILOSTAZOL
     Route: 048
  15. FINASTERIDE [Concomitant]
     Active Substance: FINASTERIDE
     Route: 048
  16. FLECAINIDE [Concomitant]
     Active Substance: FLECAINIDE
     Route: 048
  17. LATANOPROST [Concomitant]
     Active Substance: LATANOPROST
     Route: 047
  18. MIDODRINE [Concomitant]
     Active Substance: MIDODRINE
     Route: 048
  19. PRAMIPEXOLE [Concomitant]
     Active Substance: PRAMIPEXOLE
     Route: 048
  20. TAMSULOSIN [Concomitant]
     Active Substance: TAMSULOSIN
     Route: 048
  21. TIMOLOL MALEATE [Concomitant]
     Active Substance: TIMOLOL MALEATE
     Route: 047
  22. TRAMADOL [Concomitant]
     Active Substance: TRAMADOL
     Route: 048

REACTIONS (4)
  - Death [Fatal]
  - Arteriosclerosis coronary artery [Unknown]
  - Aortic valve disease [Unknown]
  - Pulmonary hypertension [Unknown]

NARRATIVE: CASE EVENT DATE: 20220208
